FAERS Safety Report 20156355 (Version 3)
Quarter: 2022Q1

REPORT INFORMATION
  Report Type: Report from Study
  Country: US (occurrence: US)
  Receive Date: 20211207
  Receipt Date: 20220128
  Transmission Date: 20220424
  Serious: Yes (Hospitalization)
  Sender: FDA-Public Use
  Company Number: US-EXELIXIS-CABO-21046579

PATIENT
  Sex: Male

DRUGS (8)
  1. CABOMETYX [Suspect]
     Active Substance: CABOZANTINIB S-MALATE
     Indication: Prostate cancer
     Dosage: 40 MG, QD
     Dates: start: 20211104
  2. ASPIRIN [Concomitant]
     Active Substance: ASPIRIN
  3. CHILDRENS TYLENOL [Concomitant]
     Active Substance: ACETAMINOPHEN
  4. ISOSORBIDE MONONITRATE [Concomitant]
     Active Substance: ISOSORBIDE MONONITRATE
  5. PREDNISONE [Concomitant]
     Active Substance: PREDNISONE
  6. NOVOLOG [Concomitant]
     Active Substance: INSULIN ASPART
  7. AMLODIPINE BESYLATE [Concomitant]
     Active Substance: AMLODIPINE BESYLATE
  8. PRAVASTATIN SODIUM [Concomitant]
     Active Substance: PRAVASTATIN SODIUM

REACTIONS (5)
  - Paronychia [Unknown]
  - Pyrexia [Unknown]
  - Asthenia [Recovering/Resolving]
  - Wound secretion [Not Recovered/Not Resolved]
  - Off label use [Unknown]
